FAERS Safety Report 6386977-6 (Version None)
Quarter: 2009Q4

REPORT INFORMATION
  Report Type: 
  Country: None (occurrence: None)
  Receive Date: 20091002
  Receipt Date: 20090824
  Transmission Date: 20100525
  Serious: Yes (Death, Other)
  Sender: FDA-Public Use
  Company Number: US-BAXTER-2009BH006025

PATIENT
  Age: 85 Year
  Sex: Female
  Weight: 51 kg

DRUGS (11)
  1. HEPARIN SODIUM INJECTION [Suspect]
     Indication: ANGIOGRAM
     Route: 042
     Dates: start: 20080117, end: 20080118
  2. HEPARIN SODIUM INJECTION [Suspect]
     Indication: CRANIOTOMY
     Route: 042
     Dates: start: 20080117, end: 20080118
  3. DEXAMETHASONE 0.5MG TAB [Concomitant]
     Indication: DRUG USE FOR UNKNOWN INDICATION
     Route: 065
  4. FOSAMAX [Concomitant]
     Indication: DRUG USE FOR UNKNOWN INDICATION
     Route: 065
  5. TIOTROPIUM BROMIDE [Concomitant]
     Indication: DRUG USE FOR UNKNOWN INDICATION
     Route: 065
  6. ADVAIR DISKUS 100/50 [Concomitant]
     Indication: DRUG USE FOR UNKNOWN INDICATION
     Route: 055
  7. ATROVENT [Concomitant]
     Indication: DRUG USE FOR UNKNOWN INDICATION
     Route: 055
  8. KEPPRA [Concomitant]
     Indication: DRUG USE FOR UNKNOWN INDICATION
     Route: 048
  9. SYNTHROID [Concomitant]
     Indication: DRUG USE FOR UNKNOWN INDICATION
     Route: 048
  10. OMEPRAZOLE [Concomitant]
     Indication: DRUG USE FOR UNKNOWN INDICATION
     Route: 048
  11. SODIUM BICARBONATE IN PLASTIC CONTAINER [Concomitant]
     Indication: DRUG USE FOR UNKNOWN INDICATION
     Route: 048

REACTIONS (6)
  - CLOSTRIDIUM DIFFICILE COLITIS [None]
  - HYPOTENSION [None]
  - IDIOPATHIC THROMBOCYTOPENIC PURPURA [None]
  - PYREXIA [None]
  - SEPTIC SHOCK [None]
  - URINARY TRACT INFECTION ENTEROCOCCAL [None]
